FAERS Safety Report 14690087 (Version 1)
Quarter: 2018Q1

REPORT INFORMATION
  Report Type: Spontaneous
  Country: PT (occurrence: PT)
  Receive Date: 20180328
  Receipt Date: 20180328
  Transmission Date: 20180509
  Serious: Yes (Other)
  Sender: FDA-Public Use
  Company Number: PT-TEVA-2018-PT-871621

PATIENT
  Age: 69 Year
  Sex: Male
  Weight: 120 kg

DRUGS (4)
  1. MONOKET 20MG [Concomitant]
  2. LASIX 40MG [Concomitant]
  3. BECOZYME FORTE [Concomitant]
  4. METFORMIN RATIOPHARM [Suspect]
     Active Substance: METFORMIN HYDROCHLORIDE
     Dosage: 4 X DAY, WITH THE MEALS
     Route: 048

REACTIONS (5)
  - Fatigue [Recovering/Resolving]
  - Somnolence [Recovering/Resolving]
  - Cold sweat [Recovering/Resolving]
  - Feeling cold [Recovering/Resolving]
  - Hemiparesis [Recovering/Resolving]
